FAERS Safety Report 23986597 (Version 1)
Quarter: 2024Q2

REPORT INFORMATION
  Report Type: Spontaneous
  Country: US (occurrence: None)
  Receive Date: 20240617
  Receipt Date: 20240617
  Transmission Date: 20240715
  Serious: Yes (Disabling)
  Sender: FDA-Public Use
  Company Number: None

PATIENT
  Age: 79 Year
  Sex: Female
  Weight: 78.3 kg

DRUGS (7)
  1. REPATHA [Suspect]
     Active Substance: EVOLOCUMAB
     Indication: Blood cholesterol increased
     Dosage: OTHER QUANTITY : 1 ML;?OTHER FREQUENCY : EVERY 2 WEEKS;?
     Route: 058
     Dates: start: 20240204, end: 20240217
  2. BABY ASPIRIN [Concomitant]
  3. FISH OIL [Concomitant]
  4. METHYLCOBALAMIN [Concomitant]
     Active Substance: METHYLCOBALAMIN
  5. multivitamin [Concomitant]
  6. COENZYME Q10 [Concomitant]
     Active Substance: DIETARY SUPPLEMENT\UBIDECARENONE
  7. TYLENOL [Concomitant]

REACTIONS (8)
  - Neuropathy peripheral [None]
  - Myalgia [None]
  - Arthralgia [None]
  - Back pain [None]
  - Sciatica [None]
  - Primary stabbing headache [None]
  - Gait disturbance [None]
  - Cardiac disorder [None]

NARRATIVE: CASE EVENT DATE: 20240217
